FAERS Safety Report 19699592 (Version 1)
Quarter: 2021Q3

REPORT INFORMATION
  Report Type: Spontaneous
  Country: IT (occurrence: IT)
  Receive Date: 20210813
  Receipt Date: 20210813
  Transmission Date: 20211014
  Serious: Yes (Other)
  Sender: FDA-Public Use
  Company Number: IT-UCBSA-2021038506

PATIENT
  Age: 18 Year
  Sex: Female

DRUGS (2)
  1. LEVETIRACETAM. [Suspect]
     Active Substance: LEVETIRACETAM
     Indication: CORTICAL DYSPLASIA
     Dosage: 1 DOSAGE FORM DAILY
     Route: 048
  2. TOLEP [Suspect]
     Active Substance: OXCARBAZEPINE
     Indication: CORTICAL DYSPLASIA
     Dosage: 300 MG DAILY
     Route: 048

REACTIONS (5)
  - Diarrhoea [Recovering/Resolving]
  - Hypochloraemia [Recovering/Resolving]
  - Hyponatraemia [Recovering/Resolving]
  - Product use in unapproved indication [Unknown]
  - Product use issue [Unknown]

NARRATIVE: CASE EVENT DATE: 20210704
